FAERS Safety Report 7912416-7 (Version None)
Quarter: 2011Q4

REPORT INFORMATION
  Report Type: 
  Country: None (occurrence: None)
  Receive Date: 20111114
  Receipt Date: 20111109
  Transmission Date: 20120403
  Serious: Yes (Other)
  Sender: FDA-Public Use
  Company Number: US-PFIZER INC-2011274994

PATIENT
  Sex: Female
  Weight: 50.8 kg

DRUGS (5)
  1. MULTI-VITAMINS [Concomitant]
     Dosage: UNK
  2. PREMARIN [Suspect]
     Indication: MENOPAUSAL SYMPTOMS
     Dosage: UNK
     Route: 048
     Dates: start: 20100601
  3. PREMARIN [Suspect]
     Indication: HOT FLUSH
  4. LEVOTHYROXINE [Concomitant]
     Indication: HYPOTHYROIDISM
     Dosage: UNK
  5. PREMARIN [Suspect]
     Indication: HORMONE REPLACEMENT THERAPY
     Dosage: 0.3 MG, 1X/DAY
     Route: 048

REACTIONS (3)
  - PANIC ATTACK [None]
  - DEPRESSION [None]
  - ANXIETY [None]
